FAERS Safety Report 10170716 (Version 1)
Quarter: 2014Q2

REPORT INFORMATION
  Report Type: Spontaneous
  Country: US (occurrence: US)
  Receive Date: 20140514
  Receipt Date: 20140514
  Transmission Date: 20141212
  Serious: No
  Sender: FDA-Public Use
  Company Number: US-009507513-1404USA015298

PATIENT
  Sex: Male

DRUGS (3)
  1. PEGINTRON [Suspect]
     Indication: HEPATITIS C
     Dosage: REDIPEN 0.5C, QW
     Route: 058
     Dates: start: 20130630, end: 20140105
  2. REBETOL [Suspect]
     Indication: HEPATITIS C
     Dosage: 1200 MG, BID (TWICE A DAY)
     Route: 048
     Dates: start: 20130630
  3. VICTRELIS [Suspect]
     Indication: HEPATITIS C
     Dosage: 2400 MG, TID
     Dates: start: 20130729

REACTIONS (6)
  - Decreased appetite [Unknown]
  - Weight decreased [Recovered/Resolved]
  - Vomiting [Unknown]
  - Influenza like illness [Unknown]
  - Asthenia [Unknown]
  - Depressed mood [Unknown]
